FAERS Safety Report 19383964 (Version 1)
Quarter: 2021Q2

REPORT INFORMATION
  Report Type: Spontaneous
  Country: IT (occurrence: IT)
  Receive Date: 20210608
  Receipt Date: 20210608
  Transmission Date: 20210717
  Serious: Yes (Other)
  Sender: FDA-Public Use
  Company Number: IT-LUPIN PHARMACEUTICALS INC.-2021-08500

PATIENT
  Age: 58 Year
  Sex: Female
  Weight: 55 kg

DRUGS (4)
  1. SIMVASTATIN TABLETS [Interacting]
     Active Substance: SIMVASTATIN
     Dosage: 20 MILLIGRAM
     Route: 048
     Dates: start: 201706, end: 201708
  2. MINOCYCLINE [Concomitant]
     Active Substance: MINOCYCLINE HYDROCHLORIDE
     Indication: ACNE
     Dosage: UNK
     Route: 065
     Dates: end: 201802
  3. ROSUVASTATIN TABLETS [Suspect]
     Active Substance: ROSUVASTATIN
     Indication: HYPERCHOLESTEROLAEMIA
     Dosage: 5 MILLIGRAM
     Route: 048
     Dates: start: 20171230, end: 20180224
  4. SIMVASTATIN TABLETS [Interacting]
     Active Substance: SIMVASTATIN
     Indication: HYPERCHOLESTEROLAEMIA
     Dosage: 10 MILLIGRAM
     Route: 048
     Dates: start: 20160913

REACTIONS (4)
  - Hepatotoxicity [Recovered/Resolved]
  - Drug interaction [Unknown]
  - Hepatocellular injury [Recovered/Resolved]
  - Drug-induced liver injury [Recovered/Resolved]

NARRATIVE: CASE EVENT DATE: 201708
